FAERS Safety Report 20383055 (Version 4)
Quarter: 2022Q2

REPORT INFORMATION
  Report Type: Spontaneous
  Country: GB (occurrence: GB)
  Receive Date: 20220127
  Receipt Date: 20220420
  Transmission Date: 20220720
  Serious: Yes (Other)
  Sender: FDA-Public Use
  Company Number: GB-ORGANON-O2201GBR001706

PATIENT
  Sex: Male

DRUGS (1)
  1. ZOCOR [Suspect]
     Active Substance: SIMVASTATIN
     Indication: Angina pectoris
     Dosage: UNK
     Route: 048
     Dates: start: 2008, end: 200911

REACTIONS (6)
  - Adverse drug reaction [Unknown]
  - Hepatitis [Unknown]
  - Musculoskeletal stiffness [Unknown]
  - Connective tissue disorder [Unknown]
  - Alanine aminotransferase abnormal [Unknown]
  - Myalgia [Unknown]
